FAERS Safety Report 23013641 (Version 2)
Quarter: 2023Q4

REPORT INFORMATION
  Report Type: Report from Study
  Country: NL (occurrence: NL)
  Receive Date: 20231001
  Receipt Date: 20231020
  Transmission Date: 20240109
  Serious: Yes (Other)
  Sender: FDA-Public Use
  Company Number: NL-SA-SAC20220801001992

PATIENT

DRUGS (2)
  1. ALGLUCOSIDASE ALFA [Suspect]
     Active Substance: ALGLUCOSIDASE ALFA
     Indication: Glycogen storage disease type II
     Dosage: 1950 MG/500 ML, QOW (30 MINUTES 5 ML/UUR;30 MINUTES 20 ML/UUR;30 MINUTES 88 ML/UUR;R MINUTES 259 ML/
     Route: 042
     Dates: start: 20080422
  2. ALGLUCOSIDASE ALFA [Suspect]
     Active Substance: ALGLUCOSIDASE ALFA
     Dosage: 1950 MG/500 ML, QOW (30 MINUTES 5 ML/HOUR;30 MINUTES 20 ML/HOUR;30 MINUTES 88 ML/HOUR; MINUTES 250 M
     Route: 058
     Dates: start: 20220812

REACTIONS (5)
  - Malignant polyp [Unknown]
  - Bladder cancer [Unknown]
  - Peripheral swelling [Recovered/Resolved]
  - Incorrect route of product administration [Recovered/Resolved]
  - Hypertension [Unknown]

NARRATIVE: CASE EVENT DATE: 20220812
